FAERS Safety Report 6186368-7 (Version None)
Quarter: 2009Q2

REPORT INFORMATION
  Report Type: 
  Country: None (occurrence: None)
  Receive Date: 20090511
  Receipt Date: 20090430
  Transmission Date: 20091009
  Serious: Yes (Death, Hospitalization, Other)
  Sender: FDA-Public Use
  Company Number: US-BAXTER-2009BH007668

PATIENT
  Age: 86 Year
  Sex: Male

DRUGS (1)
  1. DIANEAL [Suspect]
     Indication: PERITONEAL DIALYSIS
     Route: 033
     Dates: end: 20081101

REACTIONS (3)
  - CARDIAC DISORDER [None]
  - INTESTINAL PERFORATION [None]
  - PERITONITIS BACTERIAL [None]
